FAERS Safety Report 5584054-5 (Version None)
Quarter: 2008Q1

REPORT INFORMATION
  Report Type: 
  Country: None (occurrence: None)
  Receive Date: 20080108
  Receipt Date: 20080102
  Transmission Date: 20080703
  Serious: Yes (Death)
  Sender: FDA-Public Use
  Company Number: US-ROCHE-539298

PATIENT
  Age: 54 Year
  Sex: Male

DRUGS (4)
  1. PEGASYS [Suspect]
     Route: 058
     Dates: start: 20070101, end: 20071216
  2. COPEGUS [Suspect]
     Route: 065
     Dates: start: 20070101, end: 20071216
  3. XANAX [Concomitant]
     Indication: DRUG USE FOR UNKNOWN INDICATION
     Dosage: REPORTED AS 0.5 MG AT HS
     Dates: end: 20071216
  4. OXYCONTIN [Concomitant]
     Indication: DRUG USE FOR UNKNOWN INDICATION
     Dosage: REPORTED AS 40 MG 2-3 TIMES/WEEK
     Dates: end: 20071216

REACTIONS (1)
  - DEATH [None]
